FAERS Safety Report 13387502 (Version 1)
Quarter: 2017Q1

REPORT INFORMATION
  Report Type: Spontaneous
  Country: US (occurrence: US)
  Receive Date: 20170330
  Receipt Date: 20170330
  Transmission Date: 20170429
  Serious: Yes (Other)
  Sender: FDA-Public Use
  Company Number: US-BAUSCH-BL-2016-026828

PATIENT
  Sex: Female

DRUGS (2)
  1. JUVEDERM [Suspect]
     Active Substance: HYALURONIC ACID
     Indication: PRODUCT USED FOR UNKNOWN INDICATION
     Route: 065
  2. VITRASE [Suspect]
     Active Substance: HYALURONIDASE, OVINE
     Indication: HYPERSENSITIVITY
     Route: 058
     Dates: start: 20160306

REACTIONS (13)
  - Adverse reaction [Unknown]
  - Muscle spasms [Unknown]
  - Swelling face [Unknown]
  - Blindness unilateral [Unknown]
  - Diplopia [Recovering/Resolving]
  - Hypoaesthesia [Recovering/Resolving]
  - Facial pain [Unknown]
  - Pain [Unknown]
  - Visual impairment [Unknown]
  - Burning sensation [Recovering/Resolving]
  - Facial spasm [Recovering/Resolving]
  - Thermal burn [Unknown]
  - Erythema [Unknown]
